FAERS Safety Report 20491213 (Version 1)
Quarter: 2022Q1

REPORT INFORMATION
  Report Type: Spontaneous
  Country: US (occurrence: US)
  Receive Date: 20220218
  Receipt Date: 20220218
  Transmission Date: 20220423
  Serious: Yes (Other)
  Sender: FDA-Public Use
  Company Number: US-UCBSA-2022007701

PATIENT
  Age: 9 Month
  Sex: Female

DRUGS (2)
  1. VIMPAT [Suspect]
     Active Substance: LACOSAMIDE
     Indication: Seizure
     Dosage: UNK
  2. VIGABATRIN [Concomitant]
     Active Substance: VIGABATRIN
     Indication: Seizure

REACTIONS (2)
  - Urinary tract infection [Unknown]
  - Renal cyst [Unknown]
